FAERS Safety Report 14406913 (Version 1)
Quarter: 2018Q1

REPORT INFORMATION
  Report Type: Spontaneous
  Country: SG (occurrence: SG)
  Receive Date: 20180118
  Receipt Date: 20180118
  Transmission Date: 20180509
  Serious: Yes (Life-Threatening, Hospitalization)
  Sender: FDA-Public Use
  Company Number: SG-PFIZER INC-2018022187

PATIENT
  Age: 32 Year
  Sex: Male

DRUGS (1)
  1. PROPANOLOL HCL [Suspect]
     Active Substance: PROPRANOLOL HYDROCHLORIDE
     Indication: THYROTOXIC CRISIS
     Dosage: 10 MG, UNK
     Route: 048

REACTIONS (2)
  - Hypotension [Recovering/Resolving]
  - Atrial flutter [Recovering/Resolving]
